FAERS Safety Report 6749118-9 (Version None)
Quarter: 2010Q2

REPORT INFORMATION
  Report Type: 
  Country: None (occurrence: None)
  Receive Date: 20100601
  Receipt Date: 20100521
  Transmission Date: 20101027
  Serious: Yes (Death)
  Sender: FDA-Public Use
  Company Number: NL-BAXTER-2010BH013944

PATIENT
  Age: 65 Year
  Sex: Female

DRUGS (2)
  1. GAMMAGARD LIQUID [Suspect]
     Indication: CHRONIC INFLAMMATORY DEMYELINATING POLYRADICULONEUROPATHY
     Route: 065
     Dates: start: 20091026, end: 20100512
  2. GAMMAGARD LIQUID [Suspect]
     Indication: OFF LABEL USE
     Route: 065
     Dates: start: 20091026, end: 20100512

REACTIONS (1)
  - DEATH [None]
